FAERS Safety Report 12242036 (Version 2)
Quarter: 2016Q2

REPORT INFORMATION
  Report Type: Report from Study
  Country: KR (occurrence: KR)
  Receive Date: 20160406
  Receipt Date: 20160502
  Transmission Date: 20160815
  Serious: Yes (Hospitalization, Other)
  Sender: FDA-Public Use
  Company Number: KR-ELI_LILLY_AND_COMPANY-KR201602000590

PATIENT
  Age: 47 Year
  Sex: Male
  Weight: 58.5 kg

DRUGS (9)
  1. PACLITAXEL. [Concomitant]
     Active Substance: PACLITAXEL
     Indication: ADENOCARCINOMA GASTRIC
     Dosage: UNK
     Dates: start: 20151230
  2. ENTECAVIR. [Concomitant]
     Active Substance: ENTECAVIR
     Indication: VIRAL HEPATITIS CARRIER
     Dosage: UNK
     Dates: start: 20151127
  3. FENTORA [Concomitant]
     Active Substance: FENTANYL CITRATE
     Indication: ABDOMINAL PAIN
     Dosage: UNK
     Dates: start: 20151205
  4. ENTECAVIR. [Concomitant]
     Active Substance: ENTECAVIR
     Dosage: UNK
     Dates: start: 20160131, end: 20160301
  5. TANTUM                             /00052302/ [Concomitant]
     Indication: PROPHYLAXIS
     Dosage: UNK
     Dates: start: 20151120
  6. MEGACE F [Concomitant]
     Indication: PROPHYLAXIS
     Dosage: UNK
     Dates: start: 20160118, end: 20160213
  7. MUCOSTA [Concomitant]
     Active Substance: REBAMIPIDE
     Indication: PROPHYLAXIS
     Dosage: UNK
     Dates: start: 20160118, end: 20160227
  8. CYRAMZA [Suspect]
     Active Substance: RAMUCIRUMAB
     Indication: ADENOCARCINOMA GASTRIC
     Dosage: 8 MG/M2, EVERY 2 WEEKS
     Route: 042
     Dates: start: 20151230
  9. DUROGESIC [Concomitant]
     Active Substance: FENTANYL
     Indication: ABDOMINAL PAIN
     Dosage: UNK
     Route: 062
     Dates: start: 20151205

REACTIONS (4)
  - Abdominal pain [Not Recovered/Not Resolved]
  - Small intestinal obstruction [Unknown]
  - Intestinal dilatation [Unknown]
  - Malignant neoplasm progression [Unknown]

NARRATIVE: CASE EVENT DATE: 20160130
